FAERS Safety Report 19392161 (Version 2)
Quarter: 2021Q2

REPORT INFORMATION
  Report Type: Report from Study
  Country: US (occurrence: US)
  Receive Date: 20210609
  Receipt Date: 20210617
  Transmission Date: 20210717
  Serious: Yes (Hospitalization)
  Sender: FDA-Public Use
  Company Number: US-JNJFOC-20210548028

PATIENT
  Age: 78 Year
  Sex: Female
  Weight: 54.5 kg

DRUGS (2)
  1. OPSUMIT [Concomitant]
     Active Substance: MACITENTAN
     Indication: PULMONARY ARTERIAL HYPERTENSION
     Route: 065
  2. EPOPROSTENOL SODIUM. [Suspect]
     Active Substance: EPOPROSTENOL SODIUM
     Indication: PULMONARY ARTERIAL HYPERTENSION
     Route: 042

REACTIONS (9)
  - Product administration interrupted [Unknown]
  - Illness [Unknown]
  - Unresponsive to stimuli [Unknown]
  - Device issue [Unknown]
  - Diarrhoea [Unknown]
  - Drug delivery system malfunction [Unknown]
  - Device occlusion [Unknown]
  - Agonal respiration [Unknown]
  - Incorrect product administration duration [Unknown]

NARRATIVE: CASE EVENT DATE: 20210519
